FAERS Safety Report 16179797 (Version 3)
Quarter: 2020Q4

REPORT INFORMATION
  Report Type: Spontaneous
  Country: US (occurrence: US)
  Receive Date: 20190410
  Receipt Date: 20201116
  Transmission Date: 20210113
  Serious: Yes (Hospitalization)
  Sender: FDA-Public Use
  Company Number: US-JNJFOC-20190405922

PATIENT
  Sex: Male

DRUGS (8)
  1. ADVIL [Suspect]
     Active Substance: IBUPROFEN
     Indication: RHEUMATOID ARTHRITIS
  2. ADVIL [Suspect]
     Active Substance: IBUPROFEN
     Indication: PSORIASIS
  3. TREMFYA [Suspect]
     Active Substance: GUSELKUMAB
     Indication: PSORIASIS
     Route: 065
  4. TREMFYA [Suspect]
     Active Substance: GUSELKUMAB
     Indication: CUTANEOUS SYMPTOM
  5. MOTRIN [Suspect]
     Active Substance: IBUPROFEN
     Indication: PSORIASIS
     Route: 065
  6. TREMFYA [Suspect]
     Active Substance: GUSELKUMAB
     Indication: RHEUMATIC DISORDER
  7. MOTRIN [Suspect]
     Active Substance: IBUPROFEN
     Indication: RHEUMATOID ARTHRITIS
  8. XELJANZ [Concomitant]
     Active Substance: TOFACITINIB CITRATE
     Indication: PRODUCT USED FOR UNKNOWN INDICATION

REACTIONS (5)
  - Gastric haemorrhage [Unknown]
  - Vascular injury [Unknown]
  - Product use in unapproved indication [Unknown]
  - Hospitalisation [Unknown]
  - Off label use [Unknown]
